FAERS Safety Report 15675569 (Version 1)
Quarter: 2018Q4

REPORT INFORMATION
  Report Type: Spontaneous
  Country: US (occurrence: US)
  Receive Date: 20181130
  Receipt Date: 20181130
  Transmission Date: 20190205
  Serious: No
  Sender: FDA-Public Use
  Company Number: US-FRESENIUS MEDICAL CARE RENAL THERAPIES GROUP-FMC-1811-002049

PATIENT
  Sex: Female
  Weight: 115 kg

DRUGS (1)
  1. DELFLEX [Suspect]
     Active Substance: CALCIUM CHLORIDE\DEXTROSE\MAGNESIUM CHLORIDE\SODIUM CHLORIDE\SODIUM LACTATE
     Indication: END STAGE RENAL DISEASE
     Dosage: THREE CYCLES OF 2400 ML FOR A TOTAL TREATMENT VOLUME OF 7200 ML
     Route: 033

REACTIONS (2)
  - Nausea [Recovered/Resolved]
  - Pyrexia [Recovered/Resolved]
